FAERS Safety Report 5961655 (Version 3)
Quarter: 2013Q1

REPORT INFORMATION
  Report Type: Report from Study
  Country: DK (occurrence: DK)
  Receive Date: 20060117
  Receipt Date: 20130311
  Transmission Date: 20140127
  Serious: Yes (Death, Hospitalization)
  Sender: FDA-Public Use
  Company Number: PHHO2005DK17861

PATIENT
  Age: 55 Year
  Sex: Female
  Weight: 51 kg

DRUGS (6)
  1. NEORAL [Suspect]
     Indication: LUNG TRANSPLANT
     Dosage: 150 MG, QD
     Route: 048
     Dates: start: 20050303
  2. NEORAL [Suspect]
     Dosage: 225 MG, QD
     Route: 048
     Dates: end: 20051228
  3. IMUREL [Concomitant]
     Indication: LUNG TRANSPLANT
     Dosage: 75 MG, QD
     Route: 048
     Dates: start: 20050303
  4. PREDNISOLONE [Concomitant]
     Dosage: UNK
  5. PREDNISOLONE [Concomitant]
     Dosage: 40 MG, QD
     Route: 048
  6. PREDNISOLONE [Concomitant]
     Dosage: 50 MG, QD

REACTIONS (3)
  - Interstitial lung disease [Fatal]
  - Pulmonary function test decreased [Fatal]
  - Dyspnoea [Fatal]
